FAERS Safety Report 20740167 (Version 1)
Quarter: 2022Q2

REPORT INFORMATION
  Report Type: Other
  Country: None (occurrence: US)
  Receive Date: 20220422
  Receipt Date: 20220422
  Transmission Date: 20220721
  Serious: No
  Sender: FDA-Public Use
  Company Number: US-Ascent Pharmaceuticals, Inc.-2128075

PATIENT
  Age: 26 Year
  Sex: Male
  Weight: 88.182 kg

DRUGS (1)
  1. DEXTROAMPHET SACCHARAT, AMPHET ASPARTATE, DEXTROAMPHET SULFATE AND AMP [Suspect]
     Active Substance: AMPHETAMINE ASPARTATE\AMPHETAMINE SULFATE\DEXTROAMPHETAMINE SACCHARATE\DEXTROAMPHETAMINE SULFATE
     Indication: Attention deficit hyperactivity disorder
     Route: 065
     Dates: start: 20220301, end: 20220301

REACTIONS (4)
  - Therapeutic product ineffective [Unknown]
  - Product substitution issue [Unknown]
  - Visual impairment [Recovered/Resolved]
  - Disturbance in attention [Recovered/Resolved]
